FAERS Safety Report 15139731 (Version 1)
Quarter: 2018Q3

REPORT INFORMATION
  Report Type: Spontaneous
  Country: DE (occurrence: DE)
  Receive Date: 20180713
  Receipt Date: 20180713
  Transmission Date: 20181010
  Serious: Yes (Death, Hospitalization)
  Sender: FDA-Public Use
  Company Number: DE-WEST-WARD PHARMACEUTICALS CORP.-DE-H14001-18-00908

PATIENT
  Age: 78 Year
  Sex: Male
  Weight: 78 kg

DRUGS (32)
  1. AVASTIN [Suspect]
     Active Substance: BEVACIZUMAB
     Indication: COLORECTAL CANCER METASTATIC
     Route: 042
     Dates: start: 20150825, end: 20160128
  2. TEMGESIC [Concomitant]
     Active Substance: BUPRENORPHINE HYDROCHLORIDE
     Indication: PAIN
     Dosage: AS REQUIRED
     Route: 048
     Dates: start: 20160128, end: 20160413
  3. VOMEX A [Concomitant]
     Active Substance: DIMENHYDRINATE
     Indication: NAUSEA
     Dosage: SUPPOSITORY ; AS NECESSARY
     Route: 054
     Dates: start: 20150826
  4. CAPROS [Concomitant]
     Indication: PRODUCT USED FOR UNKNOWN INDICATION
     Route: 048
     Dates: start: 20160304
  5. PANTOZOL [Concomitant]
     Active Substance: PANTOPRAZOLE SODIUM
     Indication: PRODUCT USED FOR UNKNOWN INDICATION
     Route: 048
     Dates: end: 20160413
  6. PREGABALIN. [Concomitant]
     Active Substance: PREGABALIN
     Indication: PRODUCT USED FOR UNKNOWN INDICATION
     Route: 048
     Dates: start: 20151026
  7. EUBIOL (SACCHAROMYCES CEREVISIAE) [Concomitant]
     Indication: DIARRHOEA
     Dosage: AS NECESSARY
     Route: 048
     Dates: start: 20151005, end: 20151116
  8. FENTANYL. [Concomitant]
     Active Substance: FENTANYL
     Indication: PRODUCT USED FOR UNKNOWN INDICATION
     Dosage: PER HOUR
     Route: 065
     Dates: start: 20160324
  9. LYRICA [Concomitant]
     Active Substance: PREGABALIN
     Indication: POLYNEUROPATHY
     Route: 048
     Dates: start: 20151027, end: 20160413
  10. AVASTIN [Suspect]
     Active Substance: BEVACIZUMAB
     Indication: PRODUCT USED FOR UNKNOWN INDICATION
     Route: 042
     Dates: start: 20151026
  11. AVASTIN [Suspect]
     Active Substance: BEVACIZUMAB
     Route: 042
     Dates: start: 20151120
  12. LOPERAMID [Concomitant]
     Active Substance: LOPERAMIDE
     Indication: DIARRHOEA
     Route: 048
     Dates: start: 20160128, end: 20160303
  13. GRANISETRON [Concomitant]
     Active Substance: GRANISETRON
     Indication: VOMITING
     Route: 042
     Dates: start: 20150825
  14. NOVALGIN (METAMIZOLE SODIUM) [Concomitant]
     Active Substance: METAMIZOLE SODIUM
     Indication: HEADACHE
     Route: 042
     Dates: start: 20160105, end: 20160128
  15. KEVATRIL [Concomitant]
     Active Substance: GRANISETRON HYDROCHLORIDE
     Indication: NAUSEA
     Route: 042
     Dates: start: 20151120, end: 20160128
  16. VITAMIN B COMPLEX [Concomitant]
     Active Substance: CYANOCOBALAMIN\DEXPANTHENOL\NIACINAMIDE\PYRIDOXINE HYDROCHLORIDE\RIBOFLAVIN 5^-PHOSPHATE SODIUM\THIAMINE HYDROCHLORIDE\VITAMIN B COMPLEX
     Indication: POLYNEUROPATHY
     Dosage: (1)
     Route: 048
     Dates: start: 20151026, end: 20151120
  17. NOVALGIN (METAMIZOLE SODIUM) [Concomitant]
     Active Substance: METAMIZOLE SODIUM
     Indication: PRODUCT USED FOR UNKNOWN INDICATION
     Dosage: 30 DROPS 4 TIMES DAILY ()
     Route: 065
     Dates: start: 20160224
  18. ASPIRIN. [Concomitant]
     Active Substance: ASPIRIN
     Indication: PRODUCT USED FOR UNKNOWN INDICATION
     Route: 048
     Dates: end: 20160413
  19. BISOPROLOL [Concomitant]
     Active Substance: BISOPROLOL
     Indication: PRODUCT USED FOR UNKNOWN INDICATION
     Route: 048
     Dates: end: 20160413
  20. SIMVASTATIN. [Concomitant]
     Active Substance: SIMVASTATIN
     Indication: PRODUCT USED FOR UNKNOWN INDICATION
     Route: 048
  21. AVASTIN [Suspect]
     Active Substance: BEVACIZUMAB
     Route: 042
     Dates: start: 20160128
  22. LOPERAMID [Concomitant]
     Active Substance: LOPERAMIDE
     Indication: PRODUCT USED FOR UNKNOWN INDICATION
     Dosage: AS NECESSARY
     Route: 048
     Dates: start: 20151005, end: 20151116
  23. DEXAMETHASON [Concomitant]
     Active Substance: DEXAMETHASONE
     Indication: NAUSEA
     Route: 042
     Dates: start: 20150825, end: 20160128
  24. IRINOTECAN [Suspect]
     Active Substance: IRINOTECAN
     Indication: COLORECTAL CANCER
     Route: 042
     Dates: start: 20151120
  25. TILIDIN [Concomitant]
     Active Substance: NALOXONE HYDROCHLORIDE\TILIDINE HYDROCHLORIDE
     Indication: PRODUCT USED FOR UNKNOWN INDICATION
     Route: 065
  26. PREGABALIN. [Concomitant]
     Active Substance: PREGABALIN
     Indication: POLYNEUROPATHY
     Route: 048
     Dates: start: 20150105
  27. DEXAMETHASON [Concomitant]
     Active Substance: DEXAMETHASONE
     Indication: VOMITING
     Route: 048
     Dates: start: 20160304, end: 20160413
  28. XELODA [Suspect]
     Active Substance: CAPECITABINE
     Indication: COLORECTAL CANCER
     Route: 048
     Dates: start: 20150825, end: 20160203
  29. VERGENTAN [Concomitant]
     Active Substance: ALIZAPRIDE HYDROCHLORIDE
     Indication: VOMITING
     Route: 048
     Dates: start: 20150826, end: 20160203
  30. MORPHINE [Concomitant]
     Active Substance: MORPHINE
     Indication: PRODUCT USED FOR UNKNOWN INDICATION
     Route: 042
     Dates: start: 20160224
  31. KEVATRIL [Concomitant]
     Active Substance: GRANISETRON HYDROCHLORIDE
     Indication: VOMITING
     Dosage: 1 AMPOULE ()
     Route: 065
  32. OXALIPLATIN. [Concomitant]
     Active Substance: OXALIPLATIN
     Indication: COLORECTAL CANCER
     Route: 042
     Dates: start: 20150825, end: 20151026

REACTIONS (10)
  - Arthralgia [Not Recovered/Not Resolved]
  - C-reactive protein increased [Not Recovered/Not Resolved]
  - Blood alkaline phosphatase increased [Not Recovered/Not Resolved]
  - Palmar-plantar erythrodysaesthesia syndrome [Recovered/Resolved]
  - Dysphonia [Recovered/Resolved]
  - Decreased appetite [Not Recovered/Not Resolved]
  - Diarrhoea [Recovered/Resolved]
  - Pain [Not Recovered/Not Resolved]
  - Gastroenteritis [Recovered/Resolved]
  - Weight decreased [Not Recovered/Not Resolved]

NARRATIVE: CASE EVENT DATE: 20151121
